FAERS Safety Report 9165860 (Version 2)
Quarter: 2013Q2

REPORT INFORMATION
  Report Type: Spontaneous
  Country: US (occurrence: None)
  Receive Date: 20130304
  Receipt Date: 20130520
  Transmission Date: 20140414
  Serious: Yes (Other)
  Sender: FDA-Public Use
  Company Number: ACO_34578_2013

PATIENT
  Age: 41 Year
  Sex: Female

DRUGS (9)
  1. AMPYRA [Suspect]
     Indication: GAIT DISTURBANCE
     Route: 048
     Dates: start: 20100820
  2. FUROSEMIDE (FUROSEMIDE) TABLET [Concomitant]
  3. ENABLEX (DARIFENACIN HYDROBROMIDE) TABLET [Concomitant]
  4. GABAPENTIN (GABAPENTIN) CAPSULE [Concomitant]
  5. BACLOFEN (BACLOFEN) (BACLOFEN) [Concomitant]
  6. HYDROCODONE/ACETAMINOPHEN (HYDROCODONE, PARACETAMOL) [Concomitant]
  7. TYLENOL (PARACETAMOL) [Concomitant]
  8. OXYBUTYNIN (OXYBUTYNIN) [Concomitant]
  9. VITAMIN D3 (COLECALCIFEROL) CAPSULE [Concomitant]

REACTIONS (3)
  - Bladder operation [None]
  - Depression [None]
  - Depression postoperative [None]
